FAERS Safety Report 23992764 (Version 1)
Quarter: 2024Q2

REPORT INFORMATION
  Report Type: Spontaneous
  Country: SK (occurrence: SK)
  Receive Date: 20240620
  Receipt Date: 20240620
  Transmission Date: 20240716
  Serious: Yes (Hospitalization)
  Sender: FDA-Public Use
  Company Number: SK-002147023-NVSC2023SK164060

PATIENT
  Age: 47 Year
  Sex: Female

DRUGS (4)
  1. QUETIAPINE [Suspect]
     Active Substance: QUETIAPINE
     Indication: Product used for unknown indication
     Dosage: UNK
     Route: 065
  2. LEVOMEPROMAZINE [Suspect]
     Active Substance: LEVOMEPROMAZINE
     Indication: Drug abuse
     Dosage: UNK
     Route: 065
     Dates: start: 20230724, end: 20230724
  3. ASOLFENA [Concomitant]
     Indication: Multiple sclerosis
     Dosage: UNK
     Route: 065
     Dates: start: 2020
  4. BETAHISTINE [Concomitant]
     Active Substance: BETAHISTINE
     Indication: Multiple sclerosis
     Dosage: UNK
     Route: 065
     Dates: start: 2020

REACTIONS (2)
  - Toxicity to various agents [Recovered/Resolved]
  - Suicide attempt [Recovered/Resolved]

NARRATIVE: CASE EVENT DATE: 20230724
